FAERS Safety Report 8585088-9 (Version None)
Quarter: 2012Q3

REPORT INFORMATION
  Report Type: 
  Country: None (occurrence: None)
  Receive Date: 20120810
  Receipt Date: 20120802
  Transmission Date: 20120928
  Serious: Yes (Hospitalization)
  Sender: FDA-Public Use
  Company Number: TR-BRISTOL-MYERS SQUIBB COMPANY-16719395

PATIENT
  Age: 65 Year
  Sex: Male
  Weight: 74 kg

DRUGS (11)
  1. CISPLATIN [Suspect]
     Indication: NON-SMALL CELL LUNG CANCER STAGE III
     Dosage: LAST DOSE ON 11JUN12
     Route: 042
     Dates: start: 20120521
  2. DEXAMETHASONE [Concomitant]
     Indication: PROPHYLAXIS
  3. ANTEPSIN [Concomitant]
     Indication: MUCOSAL INFLAMMATION
     Dates: start: 20120528
  4. MYCOSTATIN [Concomitant]
     Indication: OESOPHAGITIS
     Dates: start: 20120604, end: 20120611
  5. PEMETREXED DISODIUM [Suspect]
     Indication: NON-SMALL CELL LUNG CANCER STAGE III
     Dosage: LAST DOSE ON 11JUN12
     Route: 042
     Dates: start: 20120521
  6. KYTRIL [Concomitant]
     Indication: VOMITING
     Dates: start: 20120528
  7. FOLIC ACID [Concomitant]
     Indication: PROPHYLAXIS
  8. ANTEPSIN [Concomitant]
     Indication: OESOPHAGITIS
     Dates: start: 20120528
  9. NOVALGIN [Concomitant]
     Indication: ODYNOPHAGIA
     Dates: start: 20120604
  10. VITAMIN B-12 [Concomitant]
     Indication: PROPHYLAXIS
  11. MYCOSTATIN [Concomitant]
     Indication: MUCOSAL INFLAMMATION
     Dates: start: 20120604, end: 20120611

REACTIONS (4)
  - LEUKOPENIA [None]
  - OESOPHAGITIS [None]
  - LYMPHOPENIA [None]
  - WEIGHT DECREASED [None]
